FAERS Safety Report 5591519-9 (Version None)
Quarter: 2008Q1

REPORT INFORMATION
  Report Type: 
  Country: None (occurrence: None)
  Receive Date: 20080111
  Receipt Date: 20071228
  Transmission Date: 20080703
  Serious: Yes (Death)
  Sender: FDA-Public Use
  Company Number: US022006

PATIENT
  Age: 32 Year
  Sex: Male
  Weight: 99.8 kg

DRUGS (4)
  1. FENTANYL [Suspect]
     Dosage: ONCE
  2. ALPRAZOLAM [Suspect]
     Dosage: ONCE
  3. ETHANOL [Suspect]
     Dosage: ONCE
  4. MIRTAZAPINE [Concomitant]

REACTIONS (5)
  - ALCOHOL ABUSE [None]
  - BLOOD ETHANOL INCREASED [None]
  - MULTIPLE DRUG OVERDOSE ACCIDENTAL [None]
  - RESPIRATORY ARREST [None]
  - SELF-MEDICATION [None]
